FAERS Safety Report 17260510 (Version 1)
Quarter: 2020Q1

REPORT INFORMATION
  Report Type: Report from Study
  Country: BE (occurrence: BE)
  Receive Date: 20200113
  Receipt Date: 20200113
  Transmission Date: 20200409
  Serious: Yes (Hospitalization)
  Sender: FDA-Public Use
  Company Number: BE-BEH-2019104750

PATIENT
  Sex: Male

DRUGS (2)
  1. HIZENTRA [Suspect]
     Active Substance: HUMAN IMMUNOGLOBULIN G
     Dosage: 40ML/8G
     Route: 058
     Dates: end: 201901
  2. HIZENTRA [Suspect]
     Active Substance: HUMAN IMMUNOGLOBULIN G
     Dosage: 40ML/8G
     Route: 058

REACTIONS (6)
  - Asthenia [Not Recovered/Not Resolved]
  - Migraine [Recovering/Resolving]
  - Gastrointestinal infection [Not Recovered/Not Resolved]
  - Intentional dose omission [Recovering/Resolving]
  - Bronchitis [Recovering/Resolving]
  - Gastritis [Recovering/Resolving]
